FAERS Safety Report 4335379-2 (Version None)
Quarter: 2004Q2

REPORT INFORMATION
  Report Type: 
  Country: None (occurrence: None)
  Receive Date: 20040408
  Receipt Date: 20040408
  Transmission Date: 20050107
  Serious: No
  Sender: FDA-Public Use
  Company Number: None

PATIENT
  Sex: Male
  Weight: 104.3273 kg

DRUGS (3)
  1. REMICADE [Suspect]
     Indication: ANKYLOSING SPONDYLITIS
     Dosage: 800 MG IV Q 8 WEEKS
     Route: 042
  2. ASACOL [Concomitant]
  3. CELEBREX [Concomitant]

REACTIONS (1)
  - TESTIS CANCER [None]
